FAERS Safety Report 8397048-1 (Version None)
Quarter: 2012Q2

REPORT INFORMATION
  Report Type: 
  Country: None (occurrence: None)
  Receive Date: 20120530
  Receipt Date: 20120521
  Transmission Date: 20120825
  Serious: Yes (Hospitalization, Other)
  Sender: FDA-Public Use
  Company Number: US-ABBOTT-12P-163-0938285-00

PATIENT
  Age: 90 Year
  Sex: Female

DRUGS (18)
  1. LATANOPROST [Concomitant]
     Indication: EYE IRRITATION
     Dosage: 1 GTT DAILY
  2. PRAVASTATIN [Concomitant]
     Indication: BLOOD CHOLESTEROL INCREASED
     Dosage: AT HOUR OF SLEEP
     Route: 048
  3. ZOLOFT [Concomitant]
     Indication: PRODUCT USED FOR UNKNOWN INDICATION
  4. MULTI-VITAMIN [Concomitant]
     Indication: VITAMIN SUPPLEMENTATION
     Dosage: DAILY
     Route: 048
  5. HUMIRA [Suspect]
     Indication: GASTROENTERITIS
     Dates: start: 20120404, end: 20120503
  6. PRILOSEC [Concomitant]
     Indication: PRODUCT USED FOR UNKNOWN INDICATION
     Route: 048
  7. ASACOL [Concomitant]
     Indication: PRODUCT USED FOR UNKNOWN INDICATION
  8. METOPROLOL TARTRATE [Concomitant]
     Indication: PRODUCT USED FOR UNKNOWN INDICATION
     Dosage: 1-1/2 TABLETS AT HOUR OF SLEEP
  9. PREDNISONE TAB [Suspect]
     Indication: PRODUCT USED FOR UNKNOWN INDICATION
  10. FOSAMAX [Concomitant]
     Indication: OSTEOPOROSIS
  11. CALCIUM [Concomitant]
     Indication: MINERAL SUPPLEMENTATION
     Route: 048
  12. NORVASC [Concomitant]
     Indication: HYPERTENSION
     Route: 048
  13. LORTAB [Concomitant]
     Indication: PAIN
  14. METFORMIN HCL [Concomitant]
     Indication: DIABETES MELLITUS
     Route: 048
  15. AZATHIOPRINE [Concomitant]
     Indication: RHEUMATOID ARTHRITIS
  16. COSOPT [Concomitant]
     Indication: GLAUCOMA
  17. HUMIRA [Suspect]
     Indication: COLITIS
  18. DORZOLAMIDE [Concomitant]
     Indication: GLAUCOMA

REACTIONS (5)
  - URINARY TRACT INFECTION [None]
  - BLOOD GLUCOSE ABNORMAL [None]
  - GAIT DISTURBANCE [None]
  - DEMENTIA [None]
  - ASTHENIA [None]
